FAERS Safety Report 5150733-7 (Version None)
Quarter: 2006Q4

REPORT INFORMATION
  Report Type: 
  Country: None (occurrence: None)
  Receive Date: 20061108
  Receipt Date: 20061026
  Transmission Date: 20070319
  Serious: Yes (Hospitalization)
  Sender: FDA-Public Use
  Company Number: 2006117786

PATIENT
  Sex: Male

DRUGS (5)
  1. VIAGRA [Suspect]
     Indication: ERECTILE DYSFUNCTION
     Dosage: 25 (25 MG, 2 OR 3 TIMES PER WEEK AS NECESSARY), ORAL
     Route: 048
  2. DIOVAN HCT [Concomitant]
  3. AMLODIPINE BESYLATE [Concomitant]
  4. ATENOLOL [Concomitant]
  5. MONOCORDIL (ISOSORBIDE MONONITRATE) [Concomitant]

REACTIONS (7)
  - BLOOD PRESSURE INCREASED [None]
  - DIZZINESS [None]
  - ERYSIPELAS [None]
  - HYPOTENSION [None]
  - INTESTINAL HAEMORRHAGE [None]
  - PARTNER STRESS [None]
  - STRESS [None]
